FAERS Safety Report 7488127-1 (Version None)
Quarter: 2011Q2

REPORT INFORMATION
  Report Type: 
  Country: None (occurrence: None)
  Receive Date: 20110511
  Receipt Date: 20110504
  Transmission Date: 20111010
  Serious: Yes (Death, Hospitalization)
  Sender: FDA-Public Use
  Company Number: 027036

PATIENT
  Sex: Female
  Weight: 58 kg

DRUGS (10)
  1. HUMALOG [Concomitant]
  2. CIMZIA [Suspect]
     Indication: RHEUMATOID ARTHRITIS
     Dosage: 200 MG 1X/4 WEEKS, NUMBER OF DOSES: 19 SUBCUTANEOUS,, SUBCUTANEOUS, 200 MG 1X/4 WEEKS SUBCUTANEOUS
     Route: 058
     Dates: start: 20110131
  3. CIMZIA [Suspect]
     Indication: RHEUMATOID ARTHRITIS
     Dosage: 200 MG 1X/4 WEEKS, NUMBER OF DOSES: 19 SUBCUTANEOUS,, SUBCUTANEOUS, 200 MG 1X/4 WEEKS SUBCUTANEOUS
     Route: 058
     Dates: start: 20100212, end: 20110112
  4. CIMZIA [Suspect]
     Indication: RHEUMATOID ARTHRITIS
     Dosage: 200 MG 1X/4 WEEKS, NUMBER OF DOSES: 19 SUBCUTANEOUS,, SUBCUTANEOUS, 200 MG 1X/4 WEEKS SUBCUTANEOUS
     Route: 058
     Dates: start: 20110214, end: 20110303
  5. SPIRVIA [Concomitant]
  6. ACTRAPID INOLET [Concomitant]
  7. METOCLOPRAMIDE [Concomitant]
  8. DOSS /00080501/ [Concomitant]
  9. SYMBICORT [Concomitant]
  10. INSULIN [Concomitant]

REACTIONS (8)
  - BACTERIAL INFECTION [None]
  - RENAL FAILURE ACUTE [None]
  - PULMONARY FIBROSIS [None]
  - PNEUMONIA [None]
  - HAEMODIALYSIS [None]
  - SEPTIC SHOCK [None]
  - MYOCARDIAL INFARCTION [None]
  - GENERAL PHYSICAL HEALTH DETERIORATION [None]
